FAERS Safety Report 9263643 (Version 2)
Quarter: 2013Q2

REPORT INFORMATION
  Report Type: Spontaneous
  Country: US (occurrence: US)
  Receive Date: 20130430
  Receipt Date: 20130617
  Transmission Date: 20140414
  Serious: No
  Sender: FDA-Public Use
  Company Number: US-B.I. PHARMACEUTICALS,INC./RIDGEFIELD-2013-BI-11084BP

PATIENT
  Age: 77 Year
  Sex: Male
  Weight: 84 kg

DRUGS (4)
  1. SPIRIVA [Suspect]
     Indication: CHRONIC OBSTRUCTIVE PULMONARY DISEASE
     Dosage: 18 MCG
     Route: 055
     Dates: start: 20111104, end: 20130307
  2. TIMOLOL EYE DROPS [Concomitant]
     Indication: CATARACT
  3. GLUCOPHAGE XR [Concomitant]
     Indication: DIABETES MELLITUS
     Dosage: DOSE : 750
     Dates: start: 201210
  4. ZOCOR [Concomitant]
     Indication: BLOOD CHOLESTEROL INCREASED
     Dosage: DOSE : 40
     Dates: start: 200006

REACTIONS (7)
  - Dysphagia [Not Recovered/Not Resolved]
  - Nasal polyps [Recovered/Resolved]
  - Nasal septum deviation [Recovered/Resolved]
  - Rash [Not Recovered/Not Resolved]
  - Vision blurred [Not Recovered/Not Resolved]
  - Gastrooesophageal reflux disease [Not Recovered/Not Resolved]
  - Ageusia [Recovered/Resolved]
